FAERS Safety Report 5049782-9 (Version None)
Quarter: 2006Q3

REPORT INFORMATION
  Report Type: 
  Country: None (occurrence: None)
  Receive Date: 20060706
  Receipt Date: 20060621
  Transmission Date: 20061208
  Serious: Yes (Life-Threatening, Hospitalization, Other)
  Sender: FDA-Public Use
  Company Number: 2006-DE-03210GD

PATIENT
  Age: 77 Year
  Sex: Male

DRUGS (2)
  1. PREDNISONE TAB [Suspect]
     Indication: ALVEOLITIS ALLERGIC
     Dosage: 20 MG,
  2. CORTICOSTEROIDS (CORTICOSTEROIDS) [Suspect]
     Indication: CHRONIC OBSTRUCTIVE PULMONARY DISEASE
     Dosage: PO
     Route: 048

REACTIONS (17)
  - ACTIVATED PARTIAL THROMBOPLASTIN TIME PROLONGED [None]
  - ACUTE RESPIRATORY DISTRESS SYNDROME [None]
  - ALVEOLITIS ALLERGIC [None]
  - BLOOD LACTATE DEHYDROGENASE INCREASED [None]
  - CIRCULATORY COLLAPSE [None]
  - COAGULOPATHY [None]
  - FUNGAL INFECTION [None]
  - HEPATIC ENZYME INCREASED [None]
  - HISTOPLASMOSIS DISSEMINATED [None]
  - IMMUNODEFICIENCY [None]
  - LYMPHOCYTOSIS [None]
  - PROTHROMBIN TIME PROLONGED [None]
  - RENAL FAILURE [None]
  - SEPSIS SYNDROME [None]
  - SMEAR SITE UNSPECIFIED ABNORMAL [None]
  - TACHYCARDIA [None]
  - THROMBOCYTOPENIA [None]
